FAERS Safety Report 4317005-1 (Version None)
Quarter: 2004Q1

REPORT INFORMATION
  Report Type: 
  Country: None (occurrence: None)
  Receive Date: 20040312
  Receipt Date: 20040225
  Transmission Date: 20041129
  Serious: Yes (Hospitalization)
  Sender: FDA-Public Use
  Company Number: A0499672A

PATIENT
  Age: 35 Year
  Sex: Female

DRUGS (2)
  1. NICODERM CQ [Suspect]
     Indication: EX-SMOKER
     Dosage: 21 MG / PER DAY / TRANSDERMAL
     Route: 062
     Dates: start: 20010101, end: 20010101
  2. BIRTH CONTROL [Concomitant]

REACTIONS (4)
  - ARTHRALGIA [None]
  - COLLAPSE OF LUNG [None]
  - NICOTINE DEPENDENCE [None]
  - PNEUMOTHORAX [None]
